FAERS Safety Report 6060700-7 (Version None)
Quarter: 2009Q1

REPORT INFORMATION
  Report Type: 
  Country: None (occurrence: None)
  Receive Date: 20090202
  Receipt Date: 20090121
  Transmission Date: 20090719
  Serious: Yes (Other)
  Sender: FDA-Public Use
  Company Number: JP-PFIZER INC-2009161036

PATIENT

DRUGS (1)
  1. DIFLUCAN [Suspect]

REACTIONS (1)
  - OPTIC NERVE DISORDER [None]
